FAERS Safety Report 22086933 (Version 3)
Quarter: 2023Q1

REPORT INFORMATION
  Report Type: Spontaneous
  Country: US (occurrence: US)
  Receive Date: 20230312
  Receipt Date: 20230316
  Transmission Date: 20230418
  Serious: No
  Sender: FDA-Public Use
  Company Number: US-JNJFOC-20230305719

PATIENT
  Age: 76 Year
  Sex: Female
  Weight: 90.800 kg

DRUGS (2)
  1. CONCERTA [Suspect]
     Active Substance: METHYLPHENIDATE HYDROCHLORIDE
     Indication: Narcolepsy
     Dosage: ABOUT 33 YEARS. USED STRENGTH: 18 MG AND 54 MG.? DOSE: 54MG + 18 MG
     Route: 065
  2. RITALIN [Suspect]
     Active Substance: METHYLPHENIDATE HYDROCHLORIDE
     Indication: Narcolepsy
     Dosage: 10MG IN THE MORNING AND 5MG AT NOON, 5MG AT 4PM
     Route: 065

REACTIONS (3)
  - Off label use [Unknown]
  - Hypersomnia [Unknown]
  - Product dose omission issue [Unknown]
